FAERS Safety Report 8159603-3 (Version None)
Quarter: 2012Q1

REPORT INFORMATION
  Report Type: 
  Country: None (occurrence: None)
  Receive Date: 20120223
  Receipt Date: 20120217
  Transmission Date: 20120608
  Serious: Yes (Life-Threatening)
  Sender: FDA-Public Use
  Company Number: US-SHIONOGI, INC-2011000083

PATIENT
  Sex: Female

DRUGS (7)
  1. TWINJECT 0.3 [Suspect]
     Indication: ANAPHYLACTIC REACTION
     Dosage: 0.3 MG, AS NEEDED
     Dates: start: 20110304, end: 20110304
  2. HUMULIN R [Concomitant]
     Indication: DIABETES MELLITUS
  3. LISINOPRIL [Concomitant]
  4. OXYCODONE HCL [Concomitant]
  5. SOMA [Concomitant]
  6. METFORMIN HCL [Concomitant]
     Indication: DIABETES MELLITUS
  7. CYMBALTA [Concomitant]

REACTIONS (2)
  - PRODUCT QUALITY ISSUE [None]
  - DEVICE MALFUNCTION [None]
